FAERS Safety Report 8922625 (Version 2)
Quarter: 2012Q4

REPORT INFORMATION
  Report Type: 
  Country: US (occurrence: US)
  Receive Date: 20121123
  Receipt Date: 20121128
  Transmission Date: 20130627
  Serious: Yes (Other)
  Sender: FDA-Public Use
  Company Number: US-PFIZER INC-2012290038

PATIENT
  Age: 56 Year
  Sex: Female
  Weight: 82 kg

DRUGS (4)
  1. LEVOXYL [Suspect]
     Indication: THYROID FUNCTION DECREASED
     Dosage: 75 ug, 1x/day
     Route: 048
  2. PROTONIX [Suspect]
     Indication: GASTROOESOPHAGEAL REFLUX DISEASE
     Dosage: 40 mg, 1x/day
     Route: 048
  3. LORAZEPAM [Concomitant]
     Indication: ANXIETY
     Dosage: 0.5 mg, 1x/day
  4. CYTOMEL [Concomitant]
     Indication: HYPOTHYROIDISM
     Dosage: 5 mg, UNK

REACTIONS (1)
  - Lung neoplasm malignant [Recovered/Resolved]
